FAERS Safety Report 23382956 (Version 1)
Quarter: 2024Q1

REPORT INFORMATION
  Report Type: Spontaneous
  Country: US (occurrence: US)
  Receive Date: 20240109
  Receipt Date: 20240109
  Transmission Date: 20240409
  Serious: No
  Sender: FDA-Public Use
  Company Number: US-INSUD PHARMA-2401US00060

PATIENT

DRUGS (2)
  1. SLYND [Suspect]
     Active Substance: DROSPIRENONE
     Indication: Product used for unknown indication
     Dosage: UNKNOWN
     Route: 048
     Dates: start: 202312
  2. SLYND [Suspect]
     Active Substance: DROSPIRENONE
     Dosage: UNKNOWN
     Route: 048
     Dates: end: 2022

REACTIONS (1)
  - Paraesthesia [Unknown]
